FAERS Safety Report 20494277 (Version 2)
Quarter: 2024Q2

REPORT INFORMATION
  Report Type: Other
  Country: US (occurrence: None)
  Receive Date: 20220221
  Receipt Date: 20240530
  Transmission Date: 20240716
  Serious: Yes (Other)
  Sender: FDA-Public Use
  Company Number: US-ROCHE-3026647

PATIENT

DRUGS (5)
  1. RITUXIMAB [Suspect]
     Active Substance: RITUXIMAB
     Indication: B-cell lymphoma
     Route: 065
  2. MYCOPHENOLATE MOFETIL [Suspect]
     Active Substance: MYCOPHENOLATE MOFETIL
     Indication: B-cell lymphoma
     Route: 048
  3. IBRITUMOMAB TIUXETAN [Suspect]
     Active Substance: IBRITUMOMAB TIUXETAN
     Indication: B-cell lymphoma
     Route: 065
  4. FLUDARABINE [Suspect]
     Active Substance: FLUDARABINE PHOSPHATE
     Indication: B-cell lymphoma
     Route: 065
  5. CYCLOSPORINE [Suspect]
     Active Substance: CYCLOSPORINE
     Indication: B-cell lymphoma
     Route: 048

REACTIONS (35)
  - Abdominal pain [Unknown]
  - Decreased appetite [Unknown]
  - Diarrhoea [Unknown]
  - Enterocolitis [Unknown]
  - Varices oesophageal [Unknown]
  - Graft versus host disease in gastrointestinal tract [Unknown]
  - Nausea [Unknown]
  - Angioedema [Unknown]
  - Face oedema [Unknown]
  - Fatigue [Unknown]
  - Graft versus host disease in eye [Unknown]
  - Periorbital oedema [Unknown]
  - Swollen tongue [Unknown]
  - Escherichia bacteraemia [Unknown]
  - Haematological infection [Unknown]
  - Febrile neutropenia [Unknown]
  - Wound infection [Unknown]
  - Acute kidney injury [Unknown]
  - Blood bilirubin increased [Unknown]
  - Urinary retention [Unknown]
  - Hyperglycaemia [Unknown]
  - Hypophosphataemia [Unknown]
  - Dizziness [Unknown]
  - Extrapyramidal disorder [Unknown]
  - Acute respiratory distress syndrome [Unknown]
  - Ascites [Unknown]
  - Musculoskeletal chest pain [Unknown]
  - Dyspnoea [Unknown]
  - Hypoxia [Unknown]
  - Pneumonitis [Unknown]
  - Rash [Unknown]
  - Cerebral infarction [Unknown]
  - Haematoma [Unknown]
  - Pulmonary embolism [Unknown]
  - Syncope [Unknown]
